FAERS Safety Report 6406383-5 (Version None)
Quarter: 2009Q4

REPORT INFORMATION
  Report Type: 
  Country: None (occurrence: None)
  Receive Date: 20091014
  Receipt Date: 20091005
  Transmission Date: 20100525
  Serious: Yes (Other)
  Sender: FDA-Public Use
  Company Number: ADR39202009

PATIENT
  Age: 84 Year
  Sex: Female

DRUGS (1)
  1. ALENDRONIC ACID (MFR: UNKNOWN) [Suspect]
     Indication: OSTEOPOROSIS
     Dosage: 70 MG - 1/ 1 WEEK
     Dates: start: 20070301, end: 20070401

REACTIONS (8)
  - CHEST PAIN [None]
  - DEHYDRATION [None]
  - FALL [None]
  - GASTROOESOPHAGEAL REFLUX DISEASE [None]
  - HYPOPHAGIA [None]
  - LARYNGEAL OEDEMA [None]
  - OESOPHAGITIS [None]
  - PRODUCT SUBSTITUTION ISSUE [None]
